FAERS Safety Report 20216681 (Version 1)
Quarter: 2021Q4

REPORT INFORMATION
  Report Type: Report from Study
  Country: IE (occurrence: IE)
  Receive Date: 20211222
  Receipt Date: 20211222
  Transmission Date: 20220303
  Serious: Yes (Hospitalization, Other)
  Sender: FDA-Public Use
  Company Number: IE-AstraZeneca-2021A886876

PATIENT
  Age: 4 Month
  Sex: Female

DRUGS (4)
  1. SYNAGIS [Suspect]
     Active Substance: PALIVIZUMAB
     Indication: Premature baby
     Dosage: 15.0MG/KG UNKNOWN
     Route: 030
     Dates: start: 20211019
  2. IRON [Concomitant]
     Active Substance: IRON
     Route: 050
  3. LOSEC [Concomitant]
     Active Substance: OMEPRAZOLE
     Route: 050
  4. CAROB [Concomitant]
     Active Substance: CAROB
     Route: 065

REACTIONS (2)
  - Haematemesis [Recovered/Resolved]
  - Gastrointestinal haemorrhage [Recovered/Resolved]

NARRATIVE: CASE EVENT DATE: 20211130
